FAERS Safety Report 22618951 (Version 1)
Quarter: 2023Q2

REPORT INFORMATION
  Report Type: Spontaneous
  Country: AT (occurrence: AT)
  Receive Date: 20230620
  Receipt Date: 20230620
  Transmission Date: 20230722
  Serious: Yes (Other)
  Sender: FDA-Public Use
  Company Number: AT-ROCHE-3313527

PATIENT
  Age: 60 Year
  Sex: Female
  Weight: 86 kg

DRUGS (34)
  1. CAPECITABINE [Suspect]
     Active Substance: CAPECITABINE
     Indication: HER2 positive breast cancer
     Route: 048
     Dates: start: 20210618, end: 20210924
  2. CAPECITABINE [Suspect]
     Active Substance: CAPECITABINE
     Indication: HER2 positive breast cancer
     Route: 048
     Dates: start: 20211230
  3. ADO-TRASTUZUMAB EMTANSINE [Suspect]
     Active Substance: ADO-TRASTUZUMAB EMTANSINE
     Indication: HER2 positive breast cancer
     Route: 042
     Dates: start: 20210316, end: 20210520
  4. TRASTUZUMAB [Suspect]
     Active Substance: TRASTUZUMAB
     Indication: HER2 positive breast cancer
     Route: 058
     Dates: start: 20210618, end: 20210910
  5. PACLITAXEL [Suspect]
     Active Substance: PACLITAXEL
     Indication: HER2 positive breast cancer
     Route: 042
     Dates: start: 20200103
  6. PACLITAXEL [Suspect]
     Active Substance: PACLITAXEL
     Indication: HER2 positive breast cancer
     Route: 042
     Dates: start: 20200127
  7. LETROZOLE [Suspect]
     Active Substance: LETROZOLE
     Indication: HER2 positive breast cancer
     Route: 048
     Dates: start: 20200210, end: 20200907
  8. LETROZOLE [Suspect]
     Active Substance: LETROZOLE
     Indication: HER2 positive breast cancer
     Route: 048
     Dates: start: 20201109
  9. TUCATINIB [Suspect]
     Active Substance: TUCATINIB
     Indication: HER2 positive breast cancer
     Route: 048
     Dates: start: 20210618, end: 20211001
  10. TUCATINIB [Suspect]
     Active Substance: TUCATINIB
     Indication: HER2 positive breast cancer
     Route: 048
     Dates: start: 20220121
  11. PERTUZUMAB [Suspect]
     Active Substance: PERTUZUMAB
     Indication: HER2 positive breast cancer
     Route: 042
     Dates: start: 20191014, end: 20191014
  12. PERTUZUMAB [Suspect]
     Active Substance: PERTUZUMAB
     Indication: HER2 positive breast cancer
     Route: 042
     Dates: start: 20200103
  13. TAMOXIFEN [Suspect]
     Active Substance: TAMOXIFEN
     Indication: HER2 positive breast cancer
     Route: 048
     Dates: start: 20210112
  14. TAMOXIFEN [Suspect]
     Active Substance: TAMOXIFEN
     Indication: HER2 positive breast cancer
     Route: 048
     Dates: start: 20210304
  15. ALVESCO [Concomitant]
     Active Substance: CICLESONIDE
     Dosage: ONGOING
  16. PANTOPRAZOLE SODIUM [Concomitant]
     Active Substance: PANTOPRAZOLE SODIUM
     Dosage: ONGOING
  17. SIMVASTATIN [Concomitant]
     Active Substance: SIMVASTATIN
     Dosage: ONGOING
  18. TRAZODONE HYDROCHLORIDE [Concomitant]
     Active Substance: TRAZODONE HYDROCHLORIDE
     Dosage: ONGOING
  19. Paspertin [Concomitant]
     Dosage: ONGOING
     Dates: start: 20191015
  20. LOPERAMIDE HYDROCHLORIDE [Concomitant]
     Active Substance: LOPERAMIDE HYDROCHLORIDE
     Indication: Diarrhoea
     Dosage: ONGOING
     Dates: start: 20191024
  21. POLYETHYLENE GLYCOL 3350\POTASSIUM CHLORIDE\SODIUM BICARBONATE\SODIUM [Concomitant]
     Active Substance: POLYETHYLENE GLYCOL 3350\POTASSIUM CHLORIDE\SODIUM BICARBONATE\SODIUM CHLORIDE
     Dosage: ONGOING
     Dates: start: 20191015
  22. BISOPROLOL FUMARATE [Concomitant]
     Active Substance: BISOPROLOL FUMARATE
     Dates: end: 20220715
  23. PASSEDAN [Concomitant]
     Dosage: ONGOING
     Dates: start: 20191010
  24. Novalgin [Concomitant]
     Indication: Chest pain
     Dosage: ONGOING
     Dates: start: 20200724
  25. DILTIAZEM [Concomitant]
     Active Substance: DILTIAZEM
     Dates: end: 20220715
  26. HYDROMORPHONE HYDROCHLORIDE [Concomitant]
     Active Substance: HYDROMORPHONE HYDROCHLORIDE
     Dosage: ONGOING
     Dates: start: 20211230
  27. LAFENE [Concomitant]
     Dosage: ONGOING
     Dates: start: 20220115
  28. ROFLUMILAST [Concomitant]
     Active Substance: ROFLUMILAST
     Dosage: ONGOING
  29. BECLOMETHASONE DIPROPIONATE\FORMOTEROL FUMARATE\GLYCOPYRROLATE [Concomitant]
     Active Substance: BECLOMETHASONE DIPROPIONATE\FORMOTEROL FUMARATE\GLYCOPYRROLATE
     Dosage: ONGOING
  30. Acemin [Concomitant]
     Dates: end: 20220715
  31. VENLAFAXINE HYDROCHLORIDE [Concomitant]
     Active Substance: VENLAFAXINE HYDROCHLORIDE
     Dosage: ONGOING
  32. VITAMINS WITH MINERALS [Concomitant]
     Active Substance: MINERALS\VITAMINS
     Dosage: ONGOING
  33. OLODATEROL HYDROCHLORIDE\TIOTROPIUM BROMIDE MONOHYDRATE [Concomitant]
     Active Substance: OLODATEROL HYDROCHLORIDE\TIOTROPIUM BROMIDE MONOHYDRATE
     Dosage: ONGOING
  34. BEROTEC [Concomitant]
     Active Substance: FENOTEROL HYDROBROMIDE
     Dosage: ONGOING

REACTIONS (1)
  - Seizure [Recovered/Resolved]

NARRATIVE: CASE EVENT DATE: 20220315
